FAERS Safety Report 7108377-3 (Version None)
Quarter: 2010Q4

REPORT INFORMATION
  Report Type: 
  Country: None (occurrence: None)
  Receive Date: 20101117
  Receipt Date: 20101110
  Transmission Date: 20110411
  Serious: Yes (Hospitalization, Disabling)
  Sender: FDA-Public Use
  Company Number: A0798509A

PATIENT
  Age: 49 Year
  Sex: Male

DRUGS (2)
  1. AVANDAMET [Suspect]
     Dosage: 4MG TWICE PER DAY
     Route: 048
     Dates: start: 20030517, end: 20050314
  2. AVANDIA [Suspect]
     Dosage: 4MG TWICE PER DAY
     Route: 048
     Dates: start: 20050415, end: 20070801

REACTIONS (10)
  - ANGINA PECTORIS [None]
  - ARTERIOSCLEROSIS CORONARY ARTERY [None]
  - CARDIAC FAILURE CONGESTIVE [None]
  - CARDIOGENIC SHOCK [None]
  - DYSPNOEA [None]
  - FATIGUE [None]
  - ISCHAEMIC CARDIOMYOPATHY [None]
  - MYOCARDIAL INFARCTION [None]
  - OEDEMA [None]
  - RESPIRATORY FAILURE [None]
